FAERS Safety Report 8919468 (Version 2)
Quarter: 2012Q4

REPORT INFORMATION
  Report Type: 
  Country: US (occurrence: US)
  Receive Date: 20121121
  Receipt Date: 20121213
  Transmission Date: 20130627
  Serious: Yes (Hospitalization)
  Sender: FDA-Public Use
  Company Number: US-JNJFOC-20121009714

PATIENT
  Sex: Female
  Weight: 182.35 kg

DRUGS (19)
  1. XARELTO [Suspect]
     Indication: CEREBROVASCULAR ACCIDENT PROPHYLAXIS
     Route: 048
     Dates: start: 20120807, end: 201209
  2. XARELTO [Suspect]
     Indication: ATRIAL FIBRILLATION
     Route: 048
     Dates: start: 20120807, end: 201209
  3. INSULIN REGULAR [Concomitant]
     Indication: DIABETES MELLITUS
  4. IRON [Concomitant]
     Indication: ANAEMIA
     Dates: start: 2011
  5. INSULIN NPH [Concomitant]
     Indication: DIABETES MELLITUS
  6. LASIX [Concomitant]
     Indication: FLUID RETENTION
  7. SPIRONOLACTONE [Concomitant]
     Indication: FLUID RETENTION
  8. PRISTIQ [Concomitant]
     Indication: DEPRESSION
  9. ZOLOFT [Concomitant]
     Indication: DEPRESSION
  10. COZAAR [Concomitant]
     Indication: HYPERTENSION
  11. PROMETHAZINE [Concomitant]
     Indication: NAUSEA
  12. POTASSIUM [Concomitant]
     Indication: BLOOD POTASSIUM DECREASED
  13. VITAMIN D3 [Concomitant]
     Indication: BLOOD CALCIUM DECREASED
  14. VITAMIN B12 [Concomitant]
     Indication: HYPOTHYROIDISM
  15. XANAX [Concomitant]
     Indication: ANXIETY
  16. ADVIL [Concomitant]
     Indication: PAIN
  17. GABAPENTIN [Concomitant]
     Indication: NEUROPATHY PERIPHERAL
  18. DULERA [Concomitant]
  19. COREG [Concomitant]
     Indication: HYPERTENSION

REACTIONS (4)
  - Haemorrhage [Recovering/Resolving]
  - Anaemia [Recovering/Resolving]
  - Haemoglobin decreased [Recovering/Resolving]
  - Malaise [Recovered/Resolved]
